FAERS Safety Report 21485419 (Version 1)
Quarter: 2022Q4

REPORT INFORMATION
  Report Type: Spontaneous
  Country: MX (occurrence: None)
  Receive Date: 20221019
  Receipt Date: 20221019
  Transmission Date: 20230112
  Serious: Yes (Life-Threatening, Hospitalization)
  Sender: FDA-Public Use
  Company Number: None

PATIENT
  Age: 51 Year
  Sex: Male
  Weight: 98 kg

DRUGS (1)
  1. SEMAGLUTIDE [Suspect]
     Active Substance: SEMAGLUTIDE

REACTIONS (7)
  - Anaphylactic shock [None]
  - Angioedema [None]
  - Dyspnoea [None]
  - Vision blurred [None]
  - Syncope [None]
  - Oxygen saturation decreased [None]
  - Disorientation [None]

NARRATIVE: CASE EVENT DATE: 20221017
